FAERS Safety Report 5209200-4 (Version None)
Quarter: 2007Q1

REPORT INFORMATION
  Report Type: 
  Country: None (occurrence: None)
  Receive Date: 20070111
  Receipt Date: 20070103
  Transmission Date: 20070707
  Serious: Yes (Hospitalization, Other)
  Sender: FDA-Public Use
  Company Number: HQWYE982120NOV06

PATIENT
  Age: 40 Year
  Sex: Female
  Weight: 104.42 kg

DRUGS (4)
  1. EFFEXOR XR [Suspect]
     Indication: DEPRESSION
     Dosage: UNSPECIFIED, ORAL
     Route: 048
     Dates: start: 20051220, end: 20061107
  2. LITHIUM CARBONATE [Suspect]
     Dosage: ORAL
     Route: 048
  3. ABILIFY [Concomitant]
  4. NEURONTIN [Concomitant]

REACTIONS (1)
  - HEART RATE IRREGULAR [None]
